FAERS Safety Report 14032224 (Version 2)
Quarter: 2017Q4

REPORT INFORMATION
  Report Type: Spontaneous
  Country: JP (occurrence: JP)
  Receive Date: 20171003
  Receipt Date: 20171017
  Transmission Date: 20180321
  Serious: Yes (Hospitalization)
  Sender: FDA-Public Use
  Company Number: JP-UCBSA-2017036684

PATIENT
  Age: 50 Year
  Sex: Female

DRUGS (1)
  1. E KEPPRA [Suspect]
     Active Substance: LEVETIRACETAM
     Indication: EPILEPSY
     Dosage: 1000MG DAILY
     Route: 048
     Dates: start: 2015, end: 20170906

REACTIONS (4)
  - Altered state of consciousness [Unknown]
  - Hallucination, auditory [Recovered/Resolved]
  - Hallucination [Recovered/Resolved]
  - Affect lability [Recovered/Resolved]

NARRATIVE: CASE EVENT DATE: 20170903
